FAERS Safety Report 8935434 (Version 1)
Quarter: 2012Q4

REPORT INFORMATION
  Report Type: Spontaneous
  Country: US (occurrence: None)
  Receive Date: 20121119
  Receipt Date: 20121119
  Transmission Date: 20130627
  Serious: Yes (Other)
  Sender: FDA-Public Use
  Company Number: FK201203374

PATIENT
  Age: 59 Year
  Sex: Female

DRUGS (1)
  1. LIDOCAINE [Suspect]
     Indication: NERVE BLOCK
     Dosage: Intravenous  (not otherwise specified)
     Route: 042
     Dates: start: 200509

REACTIONS (11)
  - Arthralgia [None]
  - Gait disturbance [None]
  - Injection site haematoma [None]
  - Retroperitoneal haemorrhage [None]
  - Haemoglobin decreased [None]
  - Platelet count decreased [None]
  - Blood fibrinogen increased [None]
  - International normalised ratio increased [None]
  - Activated partial thromboplastin time prolonged [None]
  - Fibrin D dimer increased [None]
  - Coagulopathy [None]
